FAERS Safety Report 7128700-3 (Version None)
Quarter: 2010Q4

REPORT INFORMATION
  Report Type: 
  Country: None (occurrence: None)
  Receive Date: 20101112
  Receipt Date: 20101029
  Transmission Date: 20110411
  Serious: Yes (Other)
  Sender: FDA-Public Use
  Company Number: 2010P1002276

PATIENT
  Age: 38 Year
  Sex: Female
  Weight: 75.7507 kg

DRUGS (11)
  1. FENTANYL [Suspect]
     Indication: FIBROMYALGIA
     Dosage: 75 MCG/HR;Q3D;TDER
     Route: 062
     Dates: start: 20060101
  2. FENTANYL [Suspect]
     Indication: INTERVERTEBRAL DISC COMPRESSION
     Dosage: 75 MCG/HR;Q3D;TDER
     Route: 062
     Dates: start: 20060101
  3. FENTANYL [Suspect]
     Indication: INTERVERTEBRAL DISC PROTRUSION
     Dosage: 75 MCG/HR;Q3D;TDER
     Route: 062
     Dates: start: 20060101
  4. FENTANYL [Suspect]
     Indication: LONG THORACIC NERVE PALSY
     Dosage: 75 MCG/HR;Q3D;TDER
     Route: 062
     Dates: start: 20060101
  5. FENTANYL [Suspect]
     Indication: MULTIPLE SCLEROSIS
     Dosage: 75 MCG/HR;Q3D;TDER
     Route: 062
     Dates: start: 20060101
  6. ZANAFLEX [Concomitant]
  7. TRILEPTAL [Concomitant]
  8. CYMBALTA [Concomitant]
  9. MAXALT [Concomitant]
  10. LYRICA [Concomitant]
  11. VALIUM [Concomitant]

REACTIONS (10)
  - BALANCE DISORDER [None]
  - BLOOD POTASSIUM ABNORMAL [None]
  - BLOOD PRESSURE ABNORMAL [None]
  - CARDIAC DISORDER [None]
  - CEREBROVASCULAR ACCIDENT [None]
  - DYSARTHRIA [None]
  - LOSS OF CONSCIOUSNESS [None]
  - MOBILITY DECREASED [None]
  - PAIN [None]
  - TINNITUS [None]
